FAERS Safety Report 6619516-2 (Version None)
Quarter: 2010Q1

REPORT INFORMATION
  Report Type: 
  Country: None (occurrence: None)
  Receive Date: 20100222
  Receipt Date: 20100212
  Transmission Date: 20100710
  Serious: Yes (Hospitalization)
  Sender: FDA-Public Use
  Company Number: 2010021912

PATIENT
  Sex: Male
  Weight: 18.6 kg

DRUGS (6)
  1. HUMATE-P [Suspect]
     Indication: EPISTAXIS
     Dosage: (1648 IU INTRAVENOUS (NOT OTHERWISE SPECIFIED)), (), ()
     Route: 042
     Dates: start: 20090804, end: 20090813
  2. HUMATE-P [Suspect]
     Indication: VON WILLEBRAND'S DISEASE
     Dosage: (1648 IU INTRAVENOUS (NOT OTHERWISE SPECIFIED)), (), ()
     Route: 042
     Dates: start: 20090804, end: 20090813
  3. HUMATE-P [Suspect]
  4. HUMATE-P [Suspect]
  5. FERROUS SULFATE TAB [Concomitant]
  6. FOLIC ACID [Concomitant]

REACTIONS (5)
  - ABNORMAL BEHAVIOUR [None]
  - ANAEMIA [None]
  - SERUM SICKNESS-LIKE REACTION [None]
  - SOMNOLENCE [None]
  - TYPE III IMMUNE COMPLEX MEDIATED REACTION [None]
